FAERS Safety Report 17685818 (Version 3)
Quarter: 2021Q2

REPORT INFORMATION
  Report Type: Spontaneous
  Country: US (occurrence: US)
  Receive Date: 20200420
  Receipt Date: 20210416
  Transmission Date: 20210716
  Serious: Yes (Other)
  Sender: FDA-Public Use
  Company Number: US-ASTRAZENECA-2020SE50550

PATIENT
  Age: 73 Year
  Sex: Male
  Weight: 107 kg

DRUGS (40)
  1. WARFARIN [Concomitant]
     Active Substance: WARFARIN
  2. DOXYCYCLINE. [Concomitant]
     Active Substance: DOXYCYCLINE
  3. BACITRACIN. [Concomitant]
     Active Substance: BACITRACIN
     Dates: start: 19990226
  4. BETAMETHASONE. [Concomitant]
     Active Substance: BETAMETHASONE
     Dates: start: 20000904
  5. COSOPT [Concomitant]
     Active Substance: DORZOLAMIDE HYDROCHLORIDE\TIMOLOL MALEATE
  6. OCUFLOX [Concomitant]
     Active Substance: OFLOXACIN
  7. TRAMADOL. [Concomitant]
     Active Substance: TRAMADOL
  8. NEXIUM [Suspect]
     Active Substance: ESOMEPRAZOLE MAGNESIUM
     Indication: GASTROOESOPHAGEAL REFLUX DISEASE
     Route: 048
     Dates: start: 2004, end: 2016
  9. NEXIUM [Suspect]
     Active Substance: ESOMEPRAZOLE MAGNESIUM
     Indication: GASTROOESOPHAGEAL REFLUX DISEASE
     Dosage: GENERIC
     Route: 048
     Dates: start: 20150122
  10. ALLOPURINOL. [Concomitant]
     Active Substance: ALLOPURINOL
  11. IBUPROFEN. [Concomitant]
     Active Substance: IBUPROFEN
     Dates: start: 20020306
  12. MIRALAX [Concomitant]
     Active Substance: POLYETHYLENE GLYCOL 3350
  13. NEXIUM [Suspect]
     Active Substance: ESOMEPRAZOLE MAGNESIUM
     Indication: GASTROOESOPHAGEAL REFLUX DISEASE
     Route: 048
     Dates: start: 200401, end: 201608
  14. NEXIUM [Suspect]
     Active Substance: ESOMEPRAZOLE MAGNESIUM
     Indication: GASTROOESOPHAGEAL REFLUX DISEASE
     Dosage: GENERIC
     Route: 065
     Dates: start: 2007, end: 2016
  15. NEXIUM [Suspect]
     Active Substance: ESOMEPRAZOLE MAGNESIUM
     Indication: GASTROOESOPHAGEAL REFLUX DISEASE
     Route: 048
     Dates: start: 20141015
  16. CLOTRIMAZOLE. [Concomitant]
     Active Substance: CLOTRIMAZOLE
     Dates: start: 19990402
  17. LATANOPROST. [Concomitant]
     Active Substance: LATANOPROST
     Dates: start: 20010201
  18. ASPIRIN. [Concomitant]
     Active Substance: ASPIRIN
     Dates: start: 20010807
  19. ZETIA [Concomitant]
     Active Substance: EZETIMIBE
     Dates: start: 20041130
  20. AMOXICILLIN. [Concomitant]
     Active Substance: AMOXICILLIN
  21. COUMADIN [Concomitant]
     Active Substance: WARFARIN SODIUM
  22. VENTOLIN [Concomitant]
     Active Substance: ALBUTEROL SULFATE
  23. PREDNISONE. [Concomitant]
     Active Substance: PREDNISONE
  24. AZITHROMYCIN ANHYDROUS. [Concomitant]
     Active Substance: AZITHROMYCIN ANHYDROUS
  25. HYDROCORTISONE. [Concomitant]
     Active Substance: HYDROCORTISONE
  26. FLUOCINOLONE [Concomitant]
     Active Substance: FLUOCINOLONE
     Dates: start: 19990402
  27. AMLODIPINE [Concomitant]
     Active Substance: AMLODIPINE BESYLATE
     Dates: start: 19990721
  28. LUMIGAN [Concomitant]
     Active Substance: BIMATOPROST
  29. ENOXAPARIN [Concomitant]
     Active Substance: ENOXAPARIN
  30. HYDROCODONE [Concomitant]
     Active Substance: HYDROCODONE
  31. CYCLOBENZAPRINE. [Concomitant]
     Active Substance: CYCLOBENZAPRINE
  32. COLCHICINE. [Concomitant]
     Active Substance: COLCHICINE
  33. LISINOPRIL. [Concomitant]
     Active Substance: LISINOPRIL
  34. ALLOPURINOL. [Concomitant]
     Active Substance: ALLOPURINOL
  35. NEXIUM [Suspect]
     Active Substance: ESOMEPRAZOLE MAGNESIUM
     Indication: GASTROOESOPHAGEAL REFLUX DISEASE
     Route: 048
     Dates: start: 20080114
  36. LEVOTHYROXINE. [Concomitant]
     Active Substance: LEVOTHYROXINE
  37. VYTORIN [Concomitant]
     Active Substance: EZETIMIBE\SIMVASTATIN
  38. BROMDAY [Concomitant]
     Active Substance: BROMFENAC SODIUM
  39. TIMOLOL. [Concomitant]
     Active Substance: TIMOLOL
     Dates: start: 20050616
  40. ALPHAGAN P [Concomitant]
     Active Substance: BRIMONIDINE TARTRATE
     Dates: start: 20020305

REACTIONS (1)
  - Chronic kidney disease [Not Recovered/Not Resolved]

NARRATIVE: CASE EVENT DATE: 2011
